FAERS Safety Report 9025321 (Version 8)
Quarter: 2017Q4

REPORT INFORMATION
  Report Type: Spontaneous
  Country: US (occurrence: US)
  Receive Date: 20130122
  Receipt Date: 20171116
  Transmission Date: 20180321
  Serious: Yes (Hospitalization, Disabling, Other)
  Sender: FDA-Public Use
  Company Number: US-009507513-1301USA010104

PATIENT
  Sex: Female
  Weight: 58.5 kg

DRUGS (5)
  1. CORTICOSTEROIDS (UNSPECIFIED) [Concomitant]
     Active Substance: UNSPECIFIED INGREDIENT
     Indication: PRODUCT USED FOR UNKNOWN INDICATION
     Dosage: UNK
     Route: 065
     Dates: start: 1998
  2. FOSAMAX [Suspect]
     Active Substance: ALENDRONATE SODIUM
     Indication: OSTEOPOROSIS
     Dosage: 70 MG, QW
     Route: 048
     Dates: start: 199907, end: 200809
  3. FOSAMAX PLUS D [Suspect]
     Active Substance: ALENDRONATE SODIUM\CHOLECALCIFEROL
     Indication: OSTEOPOROSIS
     Dosage: 70MG/2800IU, UNK
     Route: 048
     Dates: start: 200705, end: 2008
  4. ALENDRONATE SODIUM. [Suspect]
     Active Substance: ALENDRONATE SODIUM
     Indication: OSTEOPOROSIS
     Dosage: 70 MG, UNK
     Route: 065
     Dates: start: 20091013, end: 20100604
  5. ALENDRONATE SODIUM. [Suspect]
     Active Substance: ALENDRONATE SODIUM
     Indication: OSTEOPOROSIS
     Dosage: 70 MG, QW
     Route: 048
     Dates: start: 200810, end: 201110

REACTIONS (34)
  - Foot fracture [Unknown]
  - Post inflammatory pigmentation change [Unknown]
  - Stress fracture [Unknown]
  - Fall [Unknown]
  - Asthenia [Unknown]
  - Musculoskeletal stiffness [Unknown]
  - Device intolerance [Unknown]
  - Osteoarthritis [Unknown]
  - Anaemia [Unknown]
  - Type 2 diabetes mellitus [Unknown]
  - Glaucoma [Unknown]
  - Anxiety [Not Recovered/Not Resolved]
  - Foot fracture [Unknown]
  - Bursitis [Unknown]
  - Fatigue [Unknown]
  - Dry eye [Unknown]
  - Bacterial infection [Unknown]
  - Femur fracture [Recovered/Resolved]
  - Ankle fracture [Recovered/Resolved]
  - Osteopenia [Unknown]
  - Restless legs syndrome [Unknown]
  - Asthenia [Unknown]
  - Radius fracture [Recovered/Resolved]
  - Pyrexia [Unknown]
  - Low turnover osteopathy [Unknown]
  - Pain [Unknown]
  - Ecchymosis [Unknown]
  - Scar [Unknown]
  - Dysphonia [Unknown]
  - Gastrooesophageal reflux disease [Unknown]
  - Bursitis [Unknown]
  - Radius fracture [Recovered/Resolved]
  - Essential hypertension [Unknown]
  - Feeling of body temperature change [Unknown]

NARRATIVE: CASE EVENT DATE: 20001027
